FAERS Safety Report 8864443 (Version 1)
Quarter: 2012Q4

REPORT INFORMATION
  Report Type: 
  Country: US (occurrence: US)
  Receive Date: 20121024
  Receipt Date: 20121024
  Transmission Date: 20130627
  Serious: No
  Sender: FDA-Public Use
  Company Number: US-AMGEN-USASP2011067449

PATIENT
  Age: 56 Year
  Sex: Female

DRUGS (13)
  1. ENBREL [Suspect]
     Indication: PRODUCT USED FOR UNKNOWN INDICATION
     Dosage: 50 mg, qwk
     Route: 058
  2. LANTUS [Concomitant]
  3. LISINOPRIL [Concomitant]
     Dosage: 10 mg, UNK
  4. LEVOTHYROXIN [Concomitant]
     Dosage: 100 mug, UNK
  5. NIFEDIPINE [Concomitant]
     Dosage: 30 mg, UNK
  6. CETIRIZINE [Concomitant]
     Dosage: 10 mg, UNK
  7. HYDROCHLOROTH [Concomitant]
     Dosage: 12.5 mg, UNK
  8. PREVACID [Concomitant]
     Dosage: 15 mg, UNK
  9. ESTRADIOL [Concomitant]
     Dosage: 0.06 mg, UNK
  10. VITAMIN B [Concomitant]
  11. SYMLINPEN [Concomitant]
     Dosage: 1000 mug, UNK
  12. MULTIVITAMIN                       /00097801/ [Concomitant]
  13. METFORMIN ER [Concomitant]
     Dosage: 1000 mg, UNK

REACTIONS (1)
  - Anaemia [Unknown]
